APPROVED DRUG PRODUCT: LANSOPRAZOLE
Active Ingredient: LANSOPRAZOLE
Strength: 15MG
Dosage Form/Route: CAPSULE, DELAYED REL PELLETS;ORAL
Application: A202194 | Product #001
Applicant: DR REDDYS LABORATORIES LTD
Approved: May 18, 2012 | RLD: No | RS: No | Type: OTC